FAERS Safety Report 6867594-8 (Version None)
Quarter: 2010Q3

REPORT INFORMATION
  Report Type: 
  Country: None (occurrence: None)
  Receive Date: 20100722
  Receipt Date: 20090701
  Transmission Date: 20110219
  Serious: No
  Sender: FDA-Public Use
  Company Number: US-BAUSCH-2009BL003251

PATIENT
  Age: 33 Year
  Sex: Female

DRUGS (1)
  1. OPCON-A [Suspect]
     Indication: OFF LABEL USE
     Route: 047
     Dates: start: 20090701, end: 20090701

REACTIONS (5)
  - EXPIRED DRUG ADMINISTERED [None]
  - EYE IRRITATION [None]
  - MYDRIASIS [None]
  - VISION BLURRED [None]
  - WRONG TECHNIQUE IN DRUG USAGE PROCESS [None]
